FAERS Safety Report 8347145-1 (Version None)
Quarter: 2012Q2

REPORT INFORMATION
  Report Type: 
  Country: None (occurrence: None)
  Receive Date: 20120509
  Receipt Date: 20120430
  Transmission Date: 20120825
  Serious: Yes (Death)
  Sender: FDA-Public Use
  Company Number: CA-JNJFOC-20120408457

PATIENT
  Sex: Female

DRUGS (7)
  1. RABEPRAZOLE SODIUM [Concomitant]
  2. SIMPONI [Suspect]
     Indication: PRODUCT USED FOR UNKNOWN INDICATION
     Route: 058
  3. HYDROCHLOROTHIAZIDE [Concomitant]
  4. ALBUTEROL [Concomitant]
  5. CYCLOBENZAPRINE [Concomitant]
  6. HYDROMORPHONE HCL [Concomitant]
  7. FOLIC ACID [Concomitant]

REACTIONS (2)
  - INTRACRANIAL ANEURYSM [None]
  - SUBARACHNOID HAEMORRHAGE [None]
